FAERS Safety Report 25312634 (Version 2)
Quarter: 2025Q3

REPORT INFORMATION
  Report Type: Spontaneous
  Country: US (occurrence: US)
  Receive Date: 20250514
  Receipt Date: 20250702
  Transmission Date: 20251021
  Serious: No
  Sender: CALLIDITAS THERAPEUTICS AB
  Company Number: US-Calliditas-2025CAL01204

PATIENT
  Age: 42 Year
  Sex: Female

DRUGS (5)
  1. TARPEYO [Suspect]
     Active Substance: BUDESONIDE
     Indication: IgA nephropathy
     Route: 048
     Dates: start: 20241108, end: 202505
  2. LISINOPRIL [Concomitant]
     Active Substance: LISINOPRIL
  3. ENTECAVIR [Concomitant]
     Active Substance: ENTECAVIR
  4. ZYRTEC [Concomitant]
     Active Substance: CETIRIZINE HYDROCHLORIDE
  5. AMOXICILLIN [Concomitant]
     Active Substance: AMOXICILLIN

REACTIONS (8)
  - Immune system disorder [Unknown]
  - Fatigue [Unknown]
  - Muscle spasms [Unknown]
  - Arthralgia [Unknown]
  - Plicated tongue [Unknown]
  - Pharyngeal swelling [Unknown]
  - Pharyngeal erythema [Unknown]
  - Nasopharyngitis [Unknown]
